FAERS Safety Report 6253498-0 (Version None)
Quarter: 2009Q3

REPORT INFORMATION
  Report Type: 
  Country: None (occurrence: None)
  Receive Date: 20090701
  Receipt Date: 20090626
  Transmission Date: 20100115
  Serious: Yes (Hospitalization)
  Sender: FDA-Public Use
  Company Number: US-B.I. PHARMACEUTICALS,INC./RIDGEFIELD-2009-BP-07140BP

PATIENT
  Sex: Female

DRUGS (19)
  1. SPIRIVA [Suspect]
     Indication: CHRONIC OBSTRUCTIVE PULMONARY DISEASE
     Dosage: 1 PUF
     Dates: start: 20060501
  2. SPIRIVA [Suspect]
     Indication: EMPHYSEMA
  3. SPIRIVA [Suspect]
     Indication: BRONCHITIS CHRONIC
  4. SPIRIVA [Suspect]
     Indication: ASTHMA
  5. SPIRIVA [Suspect]
     Indication: DYSPNOEA
  6. ALBUTEROL SULFATE [Concomitant]
     Indication: DYSPNOEA
  7. ATROVENT [Concomitant]
     Indication: DYSPNOEA
  8. BROMIDE [Concomitant]
  9. BENICAR [Concomitant]
     Dosage: 40 MG
  10. COREG [Concomitant]
     Dosage: 12.5 MG
  11. IMDUR [Concomitant]
  12. PLAVIX [Concomitant]
     Dosage: 75 MG
  13. OMEPRAZOLE [Concomitant]
     Dosage: 40 MG
  14. ISOSORBIDE [Concomitant]
     Dosage: 30 MG
  15. LASIX [Concomitant]
     Dosage: 20 MG
  16. MAGNESIUM SULFATE [Concomitant]
     Dosage: 400 MG
  17. VYTORIN [Concomitant]
  18. LEXAPRO [Concomitant]
     Dosage: 10 MG
  19. SOTALOL HYDROCHLORIDE [Concomitant]
     Dosage: 160 MG

REACTIONS (5)
  - DRY MOUTH [None]
  - DYSPNOEA [None]
  - ENTERITIS INFECTIOUS [None]
  - RENAL DISORDER [None]
  - RENAL NEOPLASM [None]
